FAERS Safety Report 4432928-0 (Version None)
Quarter: 2004Q3

REPORT INFORMATION
  Report Type: 
  Country: None (occurrence: None)
  Receive Date: 20040823
  Receipt Date: 20040813
  Transmission Date: 20050211
  Serious: Yes (Life-Threatening, Hospitalization)
  Sender: FDA-Public Use
  Company Number: 2004224893DE

PATIENT
  Sex: Female
  Weight: 64 kg

DRUGS (3)
  1. FARMORUBICIN (EPIRUBICIN HYDROCHLORIDE) [Suspect]
     Indication: BREAST CANCER FEMALE
     Dosage: 100 MG, CYCLIC, IV
     Route: 042
     Dates: start: 20040204, end: 20040629
  2. FLUOROURACIL [Suspect]
     Indication: BREAST CANCER FEMALE
     Dosage: 300 MG, CYCLIC, IV
     Route: 042
     Dates: start: 20040304, end: 20040629
  3. CYCLOPHOSPHAMIDE [Suspect]
     Indication: BREAST CANCER FEMALE
     Dosage: 120 MG, CYCLIC, ORAL
     Route: 048
     Dates: start: 20040629, end: 20040713

REACTIONS (3)
  - FEBRILE NEUTROPENIA [None]
  - HAEMATOTOXICITY [None]
  - STOMATITIS [None]
